FAERS Safety Report 7898409-7 (Version None)
Quarter: 2011Q4

REPORT INFORMATION
  Report Type: 
  Country: None (occurrence: None)
  Receive Date: 20111107
  Receipt Date: 20111104
  Transmission Date: 20120403
  Serious: Yes (Death)
  Sender: FDA-Public Use
  Company Number: AU-B.I. PHARMACEUTICALS,INC./RIDGEFIELD-2011-AU-02058AU

PATIENT
  Sex: Male
  Weight: 74 kg

DRUGS (12)
  1. LYRICA [Concomitant]
     Dosage: 150 MG
  2. BUPRENORPHINE [Concomitant]
     Dosage: 1.4286 MG
  3. PRADAXA [Suspect]
     Indication: THROMBOSIS PROPHYLAXIS
     Dosage: 300 MG
     Dates: start: 20110822
  4. AMIODARONE HCL [Concomitant]
     Dosage: 100 MG
  5. LASIX [Concomitant]
     Dosage: 40 MG
  6. LIPITOR [Concomitant]
     Dosage: 40 MG
  7. SLOW-K [Concomitant]
  8. SPIRIVA [Concomitant]
     Dosage: 18 MCG
  9. ACETAMINOPHEN W/ CODEINE [Concomitant]
  10. ATROVENT [Concomitant]
  11. PANTOPRAZOLE [Concomitant]
     Dosage: 40 MG
  12. SYMBICORT [Concomitant]

REACTIONS (1)
  - DEATH [None]
